FAERS Safety Report 6562154-0 (Version None)
Quarter: 2010Q1

REPORT INFORMATION
  Report Type: 
  Country: None (occurrence: None)
  Receive Date: 20100130
  Receipt Date: 20091105
  Transmission Date: 20100710
  Serious: No
  Sender: FDA-Public Use
  Company Number: US-ABBOTT-09P-163-0603622-00

PATIENT
  Sex: Female
  Weight: 44.492 kg

DRUGS (8)
  1. HUMIRA [Suspect]
     Indication: CROHN'S DISEASE
     Dates: start: 20070101
  2. PROTONIX [Concomitant]
     Indication: GASTROOESOPHAGEAL REFLUX DISEASE
  3. ZANTAC [Concomitant]
     Indication: GASTROOESOPHAGEAL REFLUX DISEASE
     Dosage: UNKNOWN
  4. DICYCLOMINE HYDROCHLORIDE [Concomitant]
     Indication: ABDOMINAL PAIN UPPER
     Dosage: UNKNOWN
  5. SLOW FE [Concomitant]
     Indication: DRUG USE FOR UNKNOWN INDICATION
     Dosage: UNKNOWN
  6. VALIUM [Concomitant]
     Indication: ANXIOLYTIC THERAPY
  7. FIORICET [Concomitant]
     Indication: PAIN
  8. ALBUTEROL [Concomitant]
     Indication: DRUG USE FOR UNKNOWN INDICATION
     Route: 055

REACTIONS (2)
  - DIZZINESS [None]
  - FLATULENCE [None]
